FAERS Safety Report 5103038-4 (Version None)
Quarter: 2006Q3

REPORT INFORMATION
  Report Type: 
  Country: None (occurrence: None)
  Receive Date: 20060908
  Receipt Date: 20060829
  Transmission Date: 20061208
  Serious: Yes (Hospitalization)
  Sender: FDA-Public Use
  Company Number: HQWYE126430AUG06

PATIENT
  Age: 44 Year
  Sex: Male

DRUGS (2)
  1. RAPAMUNE [Suspect]
     Indication: PROPHYLAXIS AGAINST TRANSPLANT REJECTION
     Dosage: 3 MG 1X PER 1 DAY ORAL
     Route: 048
     Dates: start: 20060622
  2. IMMUNOGLOBULINS (IMMUNOGLOBULINS) [Concomitant]

REACTIONS (1)
  - CONGESTIVE CARDIOMYOPATHY [None]
